FAERS Safety Report 9890308 (Version 4)
Quarter: 2014Q1

REPORT INFORMATION
  Report Type: Spontaneous
  Country: GB (occurrence: GB)
  Receive Date: 20140212
  Receipt Date: 20140319
  Transmission Date: 20141002
  Serious: Yes (Other)
  Sender: FDA-Public Use
  Company Number: GB-IPSEN BIOPHARMACEUTICALS, INC.-2014-0690

PATIENT
  Age: 77 Year
  Sex: Female
  Weight: 75 kg

DRUGS (1)
  1. SOMATULINE LA [Suspect]
     Indication: NEUROENDOCRINE TUMOUR
     Dosage: 60 MG
     Route: 030
     Dates: start: 20131211

REACTIONS (3)
  - Syncope [Recovered/Resolved]
  - Atrial fibrillation [Unknown]
  - Incorrect route of drug administration [Unknown]
